FAERS Safety Report 18445260 (Version 2)
Quarter: 2020Q4

REPORT INFORMATION
  Report Type: Report from Study
  Country: CA (occurrence: CA)
  Receive Date: 20201030
  Receipt Date: 20201120
  Transmission Date: 20210114
  Serious: Yes (Life-Threatening, Other)
  Sender: FDA-Public Use
  Company Number: CA-AMGEN-CANCT2020176373

PATIENT
  Age: 54 Year
  Sex: Female

DRUGS (1)
  1. AIMOVIG [Suspect]
     Active Substance: ERENUMAB-AOOE
     Indication: MIGRAINE
     Dosage: UNK
     Route: 065
     Dates: start: 20190926

REACTIONS (7)
  - Weight decreased [Unknown]
  - Migraine [Unknown]
  - Illness [Unknown]
  - Pain [Unknown]
  - Intentional self-injury [Unknown]
  - Vomiting [Unknown]
  - Fatigue [Unknown]
